FAERS Safety Report 5229603-1 (Version None)
Quarter: 2007Q1

REPORT INFORMATION
  Report Type: 
  Country: None (occurrence: None)
  Receive Date: 20070201
  Receipt Date: 20070124
  Transmission Date: 20070707
  Serious: Yes (Other)
  Sender: FDA-Public Use
  Company Number: 07H-163-0311857-00

PATIENT
  Age: 38 Year
  Sex: Male

DRUGS (7)
  1. FLUCONAZOLE [Suspect]
     Indication: FUNGAL INFECTION
     Dosage: 400 MG, 1 IN 1 D, INTRAVENOUS
     Route: 042
  2. AMPICILLIN [Concomitant]
  3. SULBACTAM (SULBACTAM) [Concomitant]
  4. AZITHROMYCIN [Concomitant]
  5. VANCOMYCIN [Concomitant]
  6. IMIPENEM (IMIPENEM) [Concomitant]
  7. BACTRIM [Concomitant]

REACTIONS (3)
  - ADRENAL SUPPRESSION [None]
  - BLOOD POTASSIUM INCREASED [None]
  - BLOOD SODIUM DECREASED [None]
